FAERS Safety Report 7592964-2 (Version None)
Quarter: 2011Q3

REPORT INFORMATION
  Report Type: 
  Country: None (occurrence: None)
  Receive Date: 20110706
  Receipt Date: 20110628
  Transmission Date: 20111222
  Serious: Yes (Death, Hospitalization)
  Sender: FDA-Public Use
  Company Number: US-GLAXOSMITHKLINE-A0932773A

PATIENT
  Age: 79 Year
  Sex: Male

DRUGS (11)
  1. AMLODIPINE [Concomitant]
     Dosage: 10MG PER DAY
  2. TRAZODONE HCL [Concomitant]
     Dosage: 2MG TWICE PER DAY
  3. TERAZOSIN HCL [Concomitant]
     Dosage: 2MG AT NIGHT
  4. FUROSEMIDE [Concomitant]
     Dosage: 80MG PER DAY
  5. HUMALOG [Concomitant]
     Dosage: 8UNIT THREE TIMES PER DAY
     Route: 058
  6. INSULIN GLARGINE [Concomitant]
     Dosage: 40UNIT AT NIGHT
     Route: 058
  7. PROMACTA [Suspect]
     Indication: IDIOPATHIC THROMBOCYTOPENIC PURPURA
     Dates: start: 20100101
  8. LISINOPRIL [Concomitant]
     Dosage: 40MG PER DAY
  9. TOPROL-XL [Concomitant]
     Dosage: 150MG PER DAY
  10. CRESTOR [Concomitant]
     Dosage: 10MG PER DAY
  11. ALLOPURINOL [Concomitant]

REACTIONS (10)
  - PULSELESS ELECTRICAL ACTIVITY [None]
  - ORTHOPNOEA [None]
  - FLUID OVERLOAD [None]
  - DYSPNOEA [None]
  - COUGH [None]
  - CHILLS [None]
  - CARDIAC ARREST [None]
  - LOBAR PNEUMONIA [None]
  - DYSPNOEA EXERTIONAL [None]
  - DIASTOLIC DYSFUNCTION [None]
